FAERS Safety Report 25283039 (Version 5)
Quarter: 2025Q3

REPORT INFORMATION
  Report Type: Spontaneous
  Country: AU (occurrence: AU)
  Receive Date: 20250508
  Receipt Date: 20250901
  Transmission Date: 20251021
  Serious: Yes (Death, Other)
  Sender: AMICUS THERAPEUTICS
  Company Number: AU-AMICUS THERAPEUTICS, INC.-AMI_4001

PATIENT
  Age: 58 Year
  Sex: Male

DRUGS (33)
  1. GALAFOLD [Suspect]
     Active Substance: MIGALASTAT HYDROCHLORIDE
     Indication: Fabry^s disease
     Dosage: 150 MILLIGRAM, Q2WK (ONCE PER FORTNIGHT ON EVERY SUNDAY)
     Route: 048
     Dates: start: 20250309
  2. METHYLPREDNISOLONE [Concomitant]
     Active Substance: METHYLPREDNISOLONE
     Indication: Transplant rejection
     Dosage: 250 MILLIGRAM, QD
     Route: 065
     Dates: start: 20250208, end: 20250210
  3. Immunoglobulin [Concomitant]
     Indication: Transplant rejection
     Route: 042
     Dates: start: 20250224, end: 20250225
  4. Immunoglobulin [Concomitant]
     Dosage: 75 GRAM, Q4WK (FOUR WEEKLY)
     Route: 042
     Dates: start: 20250403
  5. MIDODRINE [Concomitant]
     Active Substance: MIDODRINE
     Indication: Cardiomyopathy
     Dosage: 10 MILLIGRAM, TID
     Route: 065
  6. MIDODRINE [Concomitant]
     Active Substance: MIDODRINE
     Indication: Atrial flutter
  7. MIDODRINE [Concomitant]
     Active Substance: MIDODRINE
     Indication: Hypotension
  8. ATORVASTATIN [Concomitant]
     Active Substance: ATORVASTATIN
     Indication: Hypercholesterolaemia
     Dosage: 20 MILLIGRAM, QD NOCTE (AT NIGHT)
     Route: 048
     Dates: start: 2016
  9. FLECAINIDE ACETATE [Concomitant]
     Active Substance: FLECAINIDE ACETATE
     Indication: Atrial fibrillation
     Dosage: 100 MILLIGRAM, BID
     Route: 048
     Dates: start: 2016
  10. PREGABALIN [Concomitant]
     Active Substance: PREGABALIN
     Indication: Neuropathy peripheral
     Dosage: 75 MILLIGRAM, QD NOCTE (AT NIGHT)
     Route: 048
     Dates: start: 2016
  11. METOPROLOL [Concomitant]
     Active Substance: METOPROLOL
     Indication: Atrial fibrillation
     Dosage: 12.5 MILLIGRAM, BID
     Route: 048
     Dates: start: 2016
  12. CARBAMAZEPINE [Concomitant]
     Active Substance: CARBAMAZEPINE
     Indication: Neuropathy peripheral
     Dosage: 200 MILLIGRAM, BID
     Route: 048
     Dates: start: 2016
  13. WARFARIN SODIUM [Concomitant]
     Active Substance: WARFARIN SODIUM
     Indication: Cardiac pacemaker insertion
     Route: 048
     Dates: start: 202211
  14. WARFARIN SODIUM [Concomitant]
     Active Substance: WARFARIN SODIUM
     Route: 048
     Dates: start: 202211
  15. CALCITRIOL [Concomitant]
     Active Substance: CALCITRIOL
     Indication: End stage renal disease
     Dosage: 0.25 MICROGRAM, QD
     Route: 048
     Dates: start: 2022
  16. SEVELAMER HYDROCHLORIDE [Concomitant]
     Active Substance: SEVELAMER HYDROCHLORIDE
     Indication: Chronic kidney disease
     Dosage: 800 MILLIGRAM, BID
     Route: 048
     Dates: start: 20230912
  17. PROGRAF [Concomitant]
     Active Substance: TACROLIMUS
     Indication: Prophylaxis
     Dosage: 3.5 MILLIGRAM, QD (IMMUNE SUPPRESSION LOADING DOSE)
     Route: 048
     Dates: start: 20241126, end: 20241126
  18. PROGRAF [Concomitant]
     Active Substance: TACROLIMUS
     Dosage: 1 MILLIGRAM, BID (REDUCED), IR (IMMEDIATE RELEASE)
     Route: 048
     Dates: start: 20240428
  19. MYFORTIC [Concomitant]
     Active Substance: MYCOPHENOLATE SODIUM
     Indication: Prophylaxis
     Dosage: 720 MILLIGRAM, QD (IMMUNE SUPPRESSION LOADING DOSE)
     Route: 048
     Dates: start: 20241126, end: 20241126
  20. MYFORTIC [Concomitant]
     Active Substance: MYCOPHENOLATE SODIUM
     Dosage: 720 MILLIGRAM, BID
     Route: 048
  21. PREDNISOLONE [Concomitant]
     Active Substance: PREDNISOLONE
     Indication: Product used for unknown indication
     Dosage: 5 MILLIGRAM, QD
     Route: 065
  22. VALGANCICLOVIR [Concomitant]
     Active Substance: VALGANCICLOVIR
     Indication: Product used for unknown indication
     Dosage: 450 MILLIGRAM, 2 TIMES/WK
     Route: 065
  23. VORICONAZOLE [Concomitant]
     Active Substance: VORICONAZOLE
     Indication: Product used for unknown indication
     Dosage: 400 MILLIGRAM, BID
     Route: 065
  24. SULFAMETHOXAZOLE AND TRIMETHOPRIM [Concomitant]
     Active Substance: SULFAMETHOXAZOLE\TRIMETHOPRIM
     Indication: Product used for unknown indication
     Dosage: 1 TAB, 3 TIMES/WK (MONDAY, WEDNESDAY AND FRIDAY)
     Route: 065
  25. PANTOPRAZOLE [Concomitant]
     Active Substance: PANTOPRAZOLE
     Indication: Product used for unknown indication
     Dosage: 40 MILLIGRAM, QD
     Route: 065
  26. ASPIRIN [Concomitant]
     Active Substance: ASPIRIN
     Indication: Product used for unknown indication
     Dosage: 100 MILLIGRAM, QD
     Route: 065
  27. ENOXAPARIN SODIUM [Concomitant]
     Active Substance: ENOXAPARIN SODIUM
     Indication: Product used for unknown indication
     Dosage: 80 MILLIGRAM, QD
     Route: 058
  28. CALCIUM CARBONATE [Concomitant]
     Active Substance: CALCIUM CARBONATE
     Indication: Product used for unknown indication
     Dosage: 1.5 GRAM, BID
     Route: 065
  29. BISOPROLOL [Concomitant]
     Active Substance: BISOPROLOL
     Indication: Product used for unknown indication
     Dosage: 5 MILLIGRAM, QD
     Route: 065
  30. FUROSEMIDE [Concomitant]
     Active Substance: FUROSEMIDE
     Indication: Product used for unknown indication
     Dosage: 80 MILLIGRAM, BID
     Route: 065
  31. FLUTICASONE FUROATE\VILANTEROL TRIFENATATE [Concomitant]
     Active Substance: FLUTICASONE FUROATE\VILANTEROL TRIFENATATE
     Indication: Product used for unknown indication
     Dosage: 1 PUFF, QD, MDI (METERED DOSE INHALER)
  32. MAGNESIUM [Concomitant]
     Active Substance: MAGNESIUM
     Indication: Product used for unknown indication
     Dosage: 1 GRAM, BID
     Route: 065
  33. CEPHALEXIN [Concomitant]
     Active Substance: CEPHALEXIN
     Indication: Product used for unknown indication
     Dosage: 500 MILLIGRAM, BID
     Route: 065

REACTIONS (3)
  - Death [Fatal]
  - Peripheral vascular disorder [Not Recovered/Not Resolved]
  - Off label use [Not Recovered/Not Resolved]

NARRATIVE: CASE EVENT DATE: 20250309
